FAERS Safety Report 9007577 (Version 1)
Quarter: 2013Q1

REPORT INFORMATION
  Report Type: Spontaneous
  Country: US (occurrence: US)
  Receive Date: 20130111
  Receipt Date: 20130111
  Transmission Date: 20140127
  Serious: Yes (Other)
  Sender: FDA-Public Use
  Company Number: US-009507513-0907USA03782

PATIENT
  Sex: Female
  Weight: 25.86 kg

DRUGS (1)
  1. SINGULAIR [Suspect]
     Indication: SEASONAL ALLERGY
     Dosage: 5 MG, QD
     Route: 048
     Dates: start: 20050901, end: 20081120

REACTIONS (9)
  - Abnormal behaviour [Unknown]
  - Depression [Unknown]
  - Attention deficit/hyperactivity disorder [Unknown]
  - Disturbance in attention [Unknown]
  - Educational problem [Unknown]
  - Impulsive behaviour [Unknown]
  - Mood altered [Unknown]
  - Restlessness [Unknown]
  - Social problem [Unknown]
